FAERS Safety Report 10723602 (Version 1)
Quarter: 2015Q1

REPORT INFORMATION
  Report Type: Spontaneous
  Country: FR (occurrence: None)
  Receive Date: 20150115
  Receipt Date: 20150115
  Transmission Date: 20150721
  Serious: No
  Sender: FDA-Public Use
  Company Number: FK2015GSK001838

PATIENT
  Age: 35 Year
  Sex: Male
  Weight: 96 kg

DRUGS (12)
  1. NASACORT (TRIAMCINOLONE ACETONIDE) [Concomitant]
  2. LEDERFOLINE (CALCIUM FOLINATE) [Concomitant]
  3. CRESTOR [Concomitant]
     Active Substance: ROSUVASTATIN CALCIUM
  4. PREZISTA [Suspect]
     Active Substance: DARUNAVIR ETHANOLATE
     Indication: HIV INFECTION
     Dates: start: 20120313
  5. MALOCIDE (PYRIMETHAMINE) [Concomitant]
     Active Substance: PYRIMETHAMINE
  6. KEPPRA [Concomitant]
     Active Substance: LEVETIRACETAM
  7. EZETROL (EZETIMIBE) [Concomitant]
     Active Substance: EZETIMIBE
  8. NORVIR [Suspect]
     Active Substance: RITONAVIR
     Indication: HIV INFECTION
     Dates: start: 20120313
  9. BACTRIM FORTE (SULFAMETHAZOLE + TRIMEHOPRIM) [Concomitant]
  10. KIVEXA [Suspect]
     Active Substance: ABACAVIR SULFATE\LAMIVUDINE
     Indication: HIV INFECTION
     Dates: start: 20120319
  11. DIPROSONE (BETAMETHASONE DIPROPIONATE) [Concomitant]
  12. UVEDOSE (COLECALCIFEROL) (100000 IU (INTERNATIONL UNIT, ORAL SOLUTION) (COLECALCIFEROL)) [Concomitant]
     Active Substance: CHOLECALCIFEROL

REACTIONS (3)
  - Dyslipidaemia [None]
  - Blood cholesterol increased [None]
  - Blood triglycerides increased [None]
